FAERS Safety Report 8973276 (Version 1)
Quarter: 2012Q4

REPORT INFORMATION
  Report Type: 
  Country: US (occurrence: US)
  Receive Date: 20121218
  Receipt Date: 20121218
  Transmission Date: 20130627
  Serious: Yes (Other)
  Sender: FDA-Public Use
  Company Number: US-BRISTOL-MYERS SQUIBB COMPANY-16429789

PATIENT
  Age: 18 Year
  Sex: Male

DRUGS (2)
  1. ABILIFY TABS 10 MG [Suspect]
     Indication: AUTISM
  2. TENEX [Concomitant]

REACTIONS (2)
  - Convulsion [Unknown]
  - Swelling face [Unknown]
